FAERS Safety Report 5703790-0 (Version None)
Quarter: 2008Q2

REPORT INFORMATION
  Report Type: 
  Country: None (occurrence: None)
  Receive Date: 20080414
  Receipt Date: 20080403
  Transmission Date: 20081010
  Serious: Yes (Other)
  Sender: FDA-Public Use
  Company Number: CA-JNJFOC-20080401165

PATIENT
  Age: 61 Year
  Sex: Female

DRUGS (7)
  1. DURAGESIC-100 [Suspect]
     Indication: PAIN
     Route: 065
  2. CODEINE SUL TAB [Concomitant]
     Route: 065
  3. LEVATE [Concomitant]
     Route: 065
  4. PROVERA [Concomitant]
     Route: 065
  5. PREMARIN [Concomitant]
     Route: 065
  6. PANTALOC [Concomitant]
     Route: 065
  7. HYZAAR [Concomitant]
     Route: 065

REACTIONS (7)
  - DYSGEUSIA [None]
  - DYSURIA [None]
  - NAUSEA [None]
  - POLLAKIURIA [None]
  - RENAL PAIN [None]
  - SKIN BURNING SENSATION [None]
  - WEIGHT DECREASED [None]
